FAERS Safety Report 22624249 (Version 1)
Quarter: 2023Q2

REPORT INFORMATION
  Report Type: Spontaneous
  Country: US (occurrence: None)
  Receive Date: 20230619
  Receipt Date: 20230619
  Transmission Date: 20230722
  Serious: Yes (Other)
  Sender: FDA-Public Use
  Company Number: None

PATIENT
  Age: 79 Year
  Sex: Male
  Weight: 74.7 kg

DRUGS (6)
  1. OLANZAPINE [Suspect]
     Active Substance: OLANZAPINE
     Indication: Agitation
     Dosage: FREQUENCY : DAILY;?
     Route: 048
     Dates: start: 20230317, end: 20230424
  2. OLANZAPINE [Suspect]
     Active Substance: OLANZAPINE
     Indication: Aggression
  3. OLANZAPINE [Suspect]
     Active Substance: OLANZAPINE
     Indication: Sleep disorder
  4. OLANZAPINE [Suspect]
     Active Substance: OLANZAPINE
     Indication: Agitation
     Dosage: FREQUENCY : AT BEDTIME;?
     Route: 048
     Dates: start: 20230317, end: 20230424
  5. OLANZAPINE [Suspect]
     Active Substance: OLANZAPINE
     Indication: Aggression
  6. OLANZAPINE [Suspect]
     Active Substance: OLANZAPINE
     Indication: Sleep disorder

REACTIONS (3)
  - Rash maculo-papular [None]
  - Rash erythematous [None]
  - Drug eruption [None]

NARRATIVE: CASE EVENT DATE: 20230424
